FAERS Safety Report 20068258 (Version 1)
Quarter: 2021Q4

REPORT INFORMATION
  Report Type: Other
  Country: DE (occurrence: DE)
  Receive Date: 20211115
  Receipt Date: 20211115
  Transmission Date: 20220303
  Serious: Yes (Hospitalization, Other)
  Sender: FDA-Public Use
  Company Number: DE-BIOGEN-2021BI01065525

PATIENT
  Age: 50 Year
  Sex: Female

DRUGS (8)
  1. DALFAMPRIDINE [Suspect]
     Active Substance: DALFAMPRIDINE
     Route: 065
     Dates: start: 20131122
  2. TYSABRI [Suspect]
     Active Substance: NATALIZUMAB
     Indication: Multiple sclerosis
     Route: 065
     Dates: start: 20130409, end: 20201218
  3. ASPIRIN [Concomitant]
     Active Substance: ASPIRIN
     Indication: Disease risk factor
     Dosage: 100 MILLIGRAM
     Route: 065
     Dates: start: 20180213
  4. TOLPERISONE HYDROCHLORIDE [Concomitant]
     Active Substance: TOLPERISONE HYDROCHLORIDE
     Indication: Muscle spasticity
     Dosage: 150 MILLIGRAM
     Route: 065
     Dates: start: 20180213
  5. BACLOFEN [Concomitant]
     Active Substance: BACLOFEN
     Indication: Muscle spasticity
     Dosage: 25 MILLIGRAM
     Route: 065
     Dates: start: 20120529
  6. AMANTADINE [Concomitant]
     Active Substance: AMANTADINE
     Indication: Fatigue
     Dosage: 100 MILLIGRAM
     Route: 065
     Dates: start: 20180213
  7. NABIXIMOLS [Concomitant]
     Active Substance: NABIXIMOLS
     Indication: Muscle spasticity
     Route: 065
     Dates: start: 20120301
  8. NABIXIMOLS [Concomitant]
     Active Substance: NABIXIMOLS
     Dosage: 1000 MILLIGRAM
     Route: 065
     Dates: start: 20210608

REACTIONS (1)
  - Glioblastoma multiforme [Unknown]
